FAERS Safety Report 13204424 (Version 4)
Quarter: 2017Q1

REPORT INFORMATION
  Report Type: Report from Study
  Country: BE (occurrence: BE)
  Receive Date: 20170209
  Receipt Date: 20170328
  Transmission Date: 20170428
  Serious: Yes (Other)
  Sender: FDA-Public Use
  Company Number: BE-CELGENEUS-BEL-2017020560

PATIENT
  Age: 74 Year
  Sex: Male

DRUGS (7)
  1. GLUCOPHAGE [Concomitant]
     Active Substance: METFORMIN HYDROCHLORIDE
     Indication: DIABETES MELLITUS
     Route: 065
     Dates: start: 2001
  2. FUROSEMIDE. [Concomitant]
     Active Substance: FUROSEMIDE
     Indication: HYPERTENSION
     Route: 065
     Dates: start: 2000
  3. RED BLOOD CELLS [Concomitant]
     Active Substance: HUMAN RED BLOOD CELL
     Indication: PRODUCT USED FOR UNKNOWN INDICATION
     Dosage: 3 UNITS ON 20FEB2017 AND 2 UNITS ON 3JAN2017, 10 PREVIOUS ADMINISTRATIONS
     Route: 065
  4. REVLIMID [Suspect]
     Active Substance: LENALIDOMIDE
     Dosage: 20 MILLIGRAM
     Route: 048
     Dates: start: 20130913
  5. BIO-RHUMAL [Concomitant]
     Indication: OSTEOARTHRITIS
     Route: 065
     Dates: start: 201306
  6. CARVEDILOL. [Concomitant]
     Active Substance: CARVEDILOL
     Indication: HYPERTENSION
     Route: 065
     Dates: start: 2000
  7. REVLIMID [Suspect]
     Active Substance: LENALIDOMIDE
     Indication: DIFFUSE LARGE B-CELL LYMPHOMA
     Dosage: 25 MILLIGRAM
     Route: 048
     Dates: start: 20130730

REACTIONS (1)
  - Myeloproliferative neoplasm [Not Recovered/Not Resolved]

NARRATIVE: CASE EVENT DATE: 20161116
